FAERS Safety Report 8736345 (Version 2)
Quarter: 2012Q4

REPORT INFORMATION
  Report Type: 
  Country: US (occurrence: US)
  Receive Date: 20120822
  Receipt Date: 20120906
  Transmission Date: 20130627
  Serious: No
  Sender: FDA-Public Use
  Company Number: US-PFIZER INC-2012201268

PATIENT
  Age: 81 Year
  Sex: Male
  Weight: 61.2 kg

DRUGS (4)
  1. NEURONTIN [Suspect]
     Indication: OEDEMA PERIPHERAL
     Dosage: 300 mg, 3x/day
     Dates: start: 2012, end: 2012
  2. NEURONTIN [Suspect]
     Indication: PAIN IN EXTREMITY
     Dosage: 300 mg, 2x/day
     Dates: start: 2012, end: 2012
  3. NEURONTIN [Suspect]
     Dosage: 300 mg, daily
     Dates: start: 2012
  4. METOPROLOL [Concomitant]
     Indication: HYPERTENSION
     Dosage: 100 mg, 2x/day

REACTIONS (19)
  - Drug ineffective [Unknown]
  - Dizziness [Recovering/Resolving]
  - Coordination abnormal [Not Recovered/Not Resolved]
  - Somnolence [Not Recovered/Not Resolved]
  - Dyskinesia [Not Recovered/Not Resolved]
  - Fatigue [Not Recovered/Not Resolved]
  - Speech disorder [Not Recovered/Not Resolved]
  - Memory impairment [Not Recovered/Not Resolved]
  - Confusional state [Not Recovered/Not Resolved]
  - Eye movement disorder [Not Recovered/Not Resolved]
  - Tremor [Not Recovered/Not Resolved]
  - Insomnia [Not Recovered/Not Resolved]
  - Vision blurred [Not Recovered/Not Resolved]
  - Diplopia [Not Recovered/Not Resolved]
  - Gait disturbance [Not Recovered/Not Resolved]
  - Fall [Unknown]
  - Pain in extremity [Not Recovered/Not Resolved]
  - Oedema peripheral [Not Recovered/Not Resolved]
  - Skin discolouration [Not Recovered/Not Resolved]
